FAERS Safety Report 23944230 (Version 2)
Quarter: 2024Q2

REPORT INFORMATION
  Report Type: Report from Study
  Country: US (occurrence: US)
  Receive Date: 20240606
  Receipt Date: 20240611
  Transmission Date: 20240716
  Serious: Yes (Hospitalization)
  Sender: FDA-Public Use
  Company Number: US-BAUSCH-BL-2024-008657

PATIENT
  Age: 81 Year
  Sex: Female

DRUGS (1)
  1. XIFAXAN [Suspect]
     Active Substance: RIFAXIMIN
     Indication: Hepatic encephalopathy
     Dosage: DURATION AT THE TIME OF INITIAL REPORT: 28 MONTHS
     Route: 048
     Dates: start: 202208

REACTIONS (2)
  - Abdominal infection [Unknown]
  - Constipation [Unknown]

NARRATIVE: CASE EVENT DATE: 20240409
